FAERS Safety Report 6517729-1 (Version None)
Quarter: 2009Q4

REPORT INFORMATION
  Report Type: 
  Country: None (occurrence: None)
  Receive Date: 20091224
  Receipt Date: 20091215
  Transmission Date: 20100525
  Serious: Yes (Other)
  Sender: FDA-Public Use
  Company Number: US-ASTRAZENECA-2009SE32070

PATIENT
  Sex: Male

DRUGS (3)
  1. PRILOSEC [Interacting]
     Route: 048
  2. PLAVIX [Interacting]
     Route: 048
  3. ASPIRIN [Suspect]
     Route: 048

REACTIONS (3)
  - AMNESIA [None]
  - CEREBROVASCULAR ACCIDENT [None]
  - DRUG INTERACTION [None]
